FAERS Safety Report 15383664 (Version 2)
Quarter: 2018Q4

REPORT INFORMATION
  Report Type: Spontaneous
  Country: AR (occurrence: AR)
  Receive Date: 20180913
  Receipt Date: 20181022
  Transmission Date: 20190204
  Serious: Yes (Other)
  Sender: FDA-Public Use
  Company Number: AR-BIOMARINAP-AR-2018-119846

PATIENT
  Age: 11 Year
  Sex: Male

DRUGS (1)
  1. ALDURAZYME [Suspect]
     Active Substance: LARONIDASE
     Indication: MUCOPOLYSACCHARIDOSIS
     Dosage: 4 UNK, QW
     Route: 041
     Dates: start: 2009

REACTIONS (2)
  - Fall [Recovered/Resolved]
  - Bone fissure [Recovered/Resolved]

NARRATIVE: CASE EVENT DATE: 20180902
